FAERS Safety Report 7481324-0 (Version None)
Quarter: 2011Q2

REPORT INFORMATION
  Report Type: 
  Country: None (occurrence: None)
  Receive Date: 20110516
  Receipt Date: 20110502
  Transmission Date: 20111010
  Serious: Yes (Disabling)
  Sender: FDA-Public Use
  Company Number: PHHY2011CA37129

PATIENT
  Sex: Female

DRUGS (8)
  1. COUMADIN [Concomitant]
  2. LORAZEPAM [Concomitant]
  3. MOTILIUM [Concomitant]
  4. RANITIDINE [Concomitant]
  5. MONOPRIL [Concomitant]
  6. ALISKIREN [Suspect]
     Dosage: 150 MG, UNK
     Route: 048
     Dates: start: 20101005, end: 20101018
  7. MONOCOR [Concomitant]
  8. HYDROCHLOROTHIAZIDE [Concomitant]

REACTIONS (2)
  - NAUSEA [None]
  - INSOMNIA [None]
